FAERS Safety Report 21199236 (Version 1)
Quarter: 2022Q3

REPORT INFORMATION
  Report Type: Spontaneous
  Country: CN (occurrence: CN)
  Receive Date: 20220811
  Receipt Date: 20220811
  Transmission Date: 20221026
  Serious: Yes (Hospitalization)
  Sender: FDA-Public Use
  Company Number: CN-NOVARTISPH-NVSC2022CN181119

PATIENT
  Age: 56 Year
  Sex: Male
  Weight: 75 kg

DRUGS (8)
  1. CARBAMAZEPINE [Suspect]
     Active Substance: CARBAMAZEPINE
     Indication: Epilepsy
     Dosage: 0.2 G, BID
     Route: 048
     Dates: start: 20220205, end: 20220728
  2. VALPROATE SODIUM [Suspect]
     Active Substance: VALPROATE SODIUM
     Indication: Product used for unknown indication
     Dosage: 0.5 G, BID
     Route: 048
     Dates: start: 20220705, end: 20220728
  3. METHYLPREDNISOLONE [Concomitant]
     Active Substance: METHYLPREDNISOLONE
     Indication: Product used for unknown indication
     Dosage: 60 MG, QD
     Route: 065
  4. VITAMIN C [Concomitant]
     Active Substance: ASCORBIC ACID
     Indication: Product used for unknown indication
     Dosage: UNK
     Route: 065
  5. CALCIUM [Concomitant]
     Active Substance: CALCIUM
     Indication: Product used for unknown indication
     Dosage: UNK
     Route: 065
  6. EBASTINE [Concomitant]
     Active Substance: EBASTINE
     Indication: Product used for unknown indication
     Dosage: UNK
     Route: 065
  7. OLOPATADINE [Concomitant]
     Active Substance: OLOPATADINE
     Indication: Product used for unknown indication
     Dosage: UNK
     Route: 065
  8. DIPHENHYDRAMINE [Concomitant]
     Active Substance: DIPHENHYDRAMINE
     Indication: Product used for unknown indication
     Dosage: UNK
     Route: 065

REACTIONS (1)
  - Drug eruption [Recovering/Resolving]

NARRATIVE: CASE EVENT DATE: 20220728
